FAERS Safety Report 17874592 (Version 1)
Quarter: 2020Q2

REPORT INFORMATION
  Report Type: Spontaneous
  Country: CA (occurrence: CA)
  Receive Date: 20200609
  Receipt Date: 20200609
  Transmission Date: 20200714
  Serious: Yes (Other)
  Sender: FDA-Public Use
  Company Number: CA-COVIS PHARMA B.V.-2020COV00231

PATIENT
  Sex: Female

DRUGS (4)
  1. CRESTOR [Concomitant]
     Active Substance: ROSUVASTATIN CALCIUM
  2. UNSPECIFIED BLOOD PRESSURE MEDICATION [Concomitant]
     Active Substance: UNSPECIFIED INGREDIENT
     Indication: BLOOD PRESSURE ABNORMAL
  3. OMNARIS [Suspect]
     Active Substance: CICLESONIDE
     Dosage: UNK, 2X/DAY
     Dates: start: 202005
  4. OMNARIS [Suspect]
     Active Substance: CICLESONIDE
     Dosage: UNK
     Dates: start: 2018

REACTIONS (1)
  - Secretion discharge [Not Recovered/Not Resolved]
